FAERS Safety Report 22007270 (Version 2)
Quarter: 2023Q1

REPORT INFORMATION
  Report Type: Report from Study
  Country: CA (occurrence: CA)
  Receive Date: 20230217
  Receipt Date: 20230222
  Transmission Date: 20230418
  Serious: Yes (Other)
  Sender: FDA-Public Use
  Company Number: CA-ABBVIE-4310548

PATIENT
  Sex: Female

DRUGS (1)
  1. HUMIRA [Suspect]
     Active Substance: ADALIMUMAB
     Indication: Crohn^s disease
     Route: 058
     Dates: start: 20111026, end: 2023

REACTIONS (11)
  - Intestinal obstruction [Unknown]
  - Fatigue [Unknown]
  - Crohn^s disease [Unknown]
  - Dysphagia [Unknown]
  - Gingival hypertrophy [Unknown]
  - Mucosal inflammation [Unknown]
  - Noninfective gingivitis [Unknown]
  - Oral disorder [Unknown]
  - Ovarian disorder [Unknown]
  - Injection site pain [Unknown]
  - Mouth ulceration [Unknown]
